FAERS Safety Report 9483210 (Version 1)
Quarter: 2013Q3

REPORT INFORMATION
  Report Type: Spontaneous
  Country: US (occurrence: US)
  Receive Date: 20130828
  Receipt Date: 20130828
  Transmission Date: 20140515
  Serious: No
  Sender: FDA-Public Use
  Company Number: US-MUTUAL PHARMACEUTICAL COMPANY, INC.-DXCY20130001

PATIENT
  Sex: Male

DRUGS (1)
  1. DOXYCYCLINE HYCLATE CAPSULES [Suspect]
     Indication: DEVICE RELATED INFECTION
     Route: 065
     Dates: start: 2000

REACTIONS (2)
  - Sluggishness [Not Recovered/Not Resolved]
  - Abdominal pain [Not Recovered/Not Resolved]
